FAERS Safety Report 10990639 (Version 1)
Quarter: 2015Q2

REPORT INFORMATION
  Report Type: Report from Study
  Country: US (occurrence: US)
  Receive Date: 20150406
  Receipt Date: 20150406
  Transmission Date: 20150821
  Serious: Yes (Hospitalization)
  Sender: FDA-Public Use
  Company Number: US-SA-2014SA053211

PATIENT
  Sex: Female

DRUGS (4)
  1. AUBAGIO [Suspect]
     Active Substance: TERIFLUNOMIDE
     Indication: MULTIPLE SCLEROSIS
     Route: 065
     Dates: start: 20140407
  2. TYSABRI [Concomitant]
     Active Substance: NATALIZUMAB
     Dates: end: 2012
  3. TECFIDERA [Concomitant]
     Active Substance: DIMETHYL FUMARATE
     Indication: MULTIPLE SCLEROSIS
     Route: 048
     Dates: start: 20140929
  4. AUBAGIO [Suspect]
     Active Substance: TERIFLUNOMIDE
     Indication: MULTIPLE SCLEROSIS
     Route: 065

REACTIONS (10)
  - Petechiae [Recovered/Resolved]
  - Movement disorder [Not Recovered/Not Resolved]
  - Unevaluable event [Unknown]
  - Hypersensitivity [Not Recovered/Not Resolved]
  - Lip swelling [Recovered/Resolved]
  - Dyspnoea [Not Recovered/Not Resolved]
  - Dehydration [Unknown]
  - Oral pain [Recovered/Resolved]
  - Erythema multiforme [Unknown]
  - Chapped lips [Recovered/Resolved]

NARRATIVE: CASE EVENT DATE: 2013
